FAERS Safety Report 4570533-6 (Version None)
Quarter: 2005Q1

REPORT INFORMATION
  Report Type: 
  Country: None (occurrence: None)
  Receive Date: 20050203
  Receipt Date: 20050203
  Transmission Date: 20050727
  Serious: Yes (Life-Threatening, Hospitalization, Disabling, Other)
  Sender: FDA-Public Use
  Company Number: None

PATIENT
  Age: 55 Year
  Sex: Male
  Weight: 83.4619 kg

DRUGS (2)
  1. TESTOSTERONE 60 GRAMS/10% PROGESTERONE CREAM 600MG [Suspect]
     Indication: KLINEFELTER'S SYNDROME
     Dosage: 60/10  AND 60MG/600   1/4 TSP, BID SKIN
     Dates: start: 20040601
  2. TESTOSTERONE 60 GRAMS/10% PROGESTERONE CREAM 600MG [Suspect]
     Indication: OSTEOPOROSIS
     Dosage: 60/10  AND 60MG/600   1/4 TSP, BID SKIN
     Dates: start: 20040601

REACTIONS (3)
  - DEEP VEIN THROMBOSIS [None]
  - IMPAIRED WORK ABILITY [None]
  - PULMONARY EMBOLISM [None]
